FAERS Safety Report 14789113 (Version 2)
Quarter: 2018Q2

REPORT INFORMATION
  Report Type: Spontaneous
  Country: LV (occurrence: LV)
  Receive Date: 20180423
  Receipt Date: 20180501
  Transmission Date: 20180711
  Serious: Yes (Life-Threatening, Other)
  Sender: FDA-Public Use
  Company Number: PHHY2018LV068905

PATIENT
  Age: 51 Year
  Sex: Male

DRUGS (3)
  1. TRIPLIXAM [Concomitant]
     Active Substance: AMLODIPINE BESYLATE\INDAPAMIDE\PERINDOPRIL ARGININE
     Indication: PRODUCT USED FOR UNKNOWN INDICATION
     Dosage: 1 DF, QD
     Route: 048
  2. METFORMIN [Concomitant]
     Active Substance: METFORMIN HYDROCHLORIDE
     Indication: PRODUCT USED FOR UNKNOWN INDICATION
     Dosage: 850 MG, BID
     Route: 048
  3. BREDIWAL [Suspect]
     Active Substance: IVABRADINE HYDROCHLORIDE
     Indication: TACHYCARDIA
     Dosage: 5 MG, BID
     Route: 048
     Dates: start: 20180414, end: 20180414

REACTIONS (12)
  - Laryngospasm [Unknown]
  - Rash [Unknown]
  - Dry skin [Unknown]
  - Wheezing [Unknown]
  - Generalised oedema [Unknown]
  - Angioedema [Recovering/Resolving]
  - Pruritus generalised [Unknown]
  - Swelling [Unknown]
  - Asthenia [Unknown]
  - Dyspnoea [Unknown]
  - Anaphylactic reaction [Unknown]
  - Bronchospasm [Unknown]

NARRATIVE: CASE EVENT DATE: 20180414
